FAERS Safety Report 17572215 (Version 1)
Quarter: 2020Q1

REPORT INFORMATION
  Report Type: Spontaneous
  Country: US (occurrence: US)
  Receive Date: 20200323
  Receipt Date: 20200323
  Transmission Date: 20200409
  Serious: No
  Sender: FDA-Public Use
  Company Number: None

PATIENT
  Age: 20 Year
  Sex: Female
  Weight: 65.25 kg

DRUGS (4)
  1. DIM SUPPLEMENTS [Concomitant]
  2. VITAMIN B12 [Concomitant]
     Active Substance: CYANOCOBALAMIN
  3. LAMOTRIGINE 25MG TABLETS [Suspect]
     Active Substance: LAMOTRIGINE
     Indication: BIPOLAR DISORDER
     Dosage: ?          QUANTITY:1 TABLET(S);?
     Route: 048
  4. BUPROPION XL [Concomitant]
     Active Substance: BUPROPION

REACTIONS (1)
  - Lymphadenopathy [None]

NARRATIVE: CASE EVENT DATE: 20200322
